FAERS Safety Report 20904440 (Version 1)
Quarter: 2022Q2

REPORT INFORMATION
  Report Type: Spontaneous
  Country: US (occurrence: US)
  Receive Date: 20220602
  Receipt Date: 20220602
  Transmission Date: 20220720
  Serious: No
  Sender: FDA-Public Use
  Company Number: US-GLAXOSMITHKLINE-US2022084454

PATIENT
  Age: 61 Year
  Sex: Female

DRUGS (2)
  1. BREO ELLIPTA [Suspect]
     Active Substance: FLUTICASONE FUROATE\VILANTEROL TRIFENATATE
     Indication: Asthma prophylaxis
     Dosage: 1 PUFF(S), QD, 200MCG/25MCG
     Route: 055
     Dates: start: 202101
  2. UMECLIDINIUM [Suspect]
     Active Substance: UMECLIDINIUM
     Indication: Asthma prophylaxis
     Dosage: 1 PUFF(S), 62.5MCG
     Route: 055
     Dates: start: 20220505

REACTIONS (1)
  - Product use in unapproved indication [Not Recovered/Not Resolved]

NARRATIVE: CASE EVENT DATE: 20220524
